FAERS Safety Report 21329324 (Version 2)
Quarter: 2022Q3

REPORT INFORMATION
  Report Type: Spontaneous
  Country: US (occurrence: US)
  Receive Date: 20220913
  Receipt Date: 20220914
  Transmission Date: 20221026
  Serious: No
  Sender: FDA-Public Use
  Company Number: US-PFIZER INC-202201150768

PATIENT
  Age: 55 Year
  Sex: Male
  Weight: 69.4 kg

DRUGS (1)
  1. PAXLOVID [Suspect]
     Active Substance: NIRMATRELVIR\RITONAVIR
     Indication: COVID-19 treatment
     Dosage: UNK, 2X/DAY (12 HOURS MORNING DOSE AND EVENING DOSE)
     Dates: start: 20220906, end: 20220907

REACTIONS (9)
  - Nausea [Unknown]
  - Taste disorder [Not Recovered/Not Resolved]
  - Muscle spasms [Not Recovered/Not Resolved]
  - Burning sensation [Unknown]
  - Paraesthesia [Unknown]
  - Feeling abnormal [Unknown]
  - Pharyngeal hypoaesthesia [Unknown]
  - Anosmia [Not Recovered/Not Resolved]
  - Anxiety [Unknown]

NARRATIVE: CASE EVENT DATE: 20220901
